FAERS Safety Report 9692677 (Version 1)
Quarter: 2013Q4

REPORT INFORMATION
  Report Type: Spontaneous
  Country: AU (occurrence: AU)
  Receive Date: 20131118
  Receipt Date: 20131118
  Transmission Date: 20140711
  Serious: Yes (Other)
  Sender: FDA-Public Use
  Company Number: PHHY2013AU131090

PATIENT
  Sex: Female

DRUGS (1)
  1. ONBREZ [Suspect]
     Dosage: UNK UKN, UNK

REACTIONS (2)
  - Oesophageal stenosis [Recovered/Resolved]
  - Concomitant disease aggravated [Recovered/Resolved]
